FAERS Safety Report 9329949 (Version 1)
Quarter: 2013Q2

REPORT INFORMATION
  Report Type: Spontaneous
  Country: US (occurrence: US)
  Receive Date: 20130604
  Receipt Date: 20130604
  Transmission Date: 20140414
  Serious: No
  Sender: FDA-Public Use
  Company Number: US-SANOFI-AVENTIS-2012SA053345

PATIENT
  Age: 70 Year
  Sex: Female

DRUGS (5)
  1. LANTUS SOLOSTAR [Suspect]
     Indication: TYPE 2 DIABETES MELLITUS
     Dosage: DOSE: 50 UNITS IN MORNING AND 55 UNITS IN EVENING
     Route: 058
     Dates: start: 201207
  2. SOLOSTAR [Suspect]
     Indication: TYPE 2 DIABETES MELLITUS
     Dates: start: 201207
  3. NOVOLOG [Concomitant]
     Dates: start: 201207
  4. SIMVASTATIN [Concomitant]
     Dates: start: 201207
  5. METFORMIN [Concomitant]

REACTIONS (6)
  - Pruritus [Recovering/Resolving]
  - Insomnia [Recovering/Resolving]
  - Joint swelling [Unknown]
  - Blood glucose decreased [Recovered/Resolved]
  - Feeling abnormal [Unknown]
  - Blood glucose increased [Not Recovered/Not Resolved]
